FAERS Safety Report 4389807-0 (Version None)
Quarter: 2004Q3

REPORT INFORMATION
  Report Type: 
  Country: None (occurrence: None)
  Receive Date: 20040706
  Receipt Date: 20040706
  Transmission Date: 20050211
  Serious: Yes (Other)
  Sender: FDA-Public Use
  Company Number: None

PATIENT
  Sex: Female
  Weight: 63.5036 kg

DRUGS (1)
  1. CRESTOR [Suspect]
     Indication: LIPIDS INCREASED
     Dosage: 1 TAB LOR2/WEEK ORAL
     Route: 048
     Dates: start: 20040326, end: 20040517

REACTIONS (10)
  - ARTHRALGIA [None]
  - ASTHENIA [None]
  - HEADACHE [None]
  - IRITIS [None]
  - MUSCLE ATROPHY [None]
  - MUSCLE CRAMP [None]
  - MUSCLE MASS [None]
  - NAUSEA [None]
  - PYREXIA [None]
  - WEIGHT DECREASED [None]
